FAERS Safety Report 21516112 (Version 1)
Quarter: 2022Q4

REPORT INFORMATION
  Report Type: Spontaneous
  Country: US (occurrence: US)
  Receive Date: 20221027
  Receipt Date: 20221027
  Transmission Date: 20230113
  Serious: Yes (Other)
  Sender: FDA-Public Use
  Company Number: US-FOUNDATIONCONSUMERHC-2022-US-017322

PATIENT
  Age: 21 Year
  Sex: Female

DRUGS (1)
  1. PLAN B ONE-STEP [Suspect]
     Active Substance: LEVONORGESTREL
     Indication: Post coital contraception
     Dosage: 1 TAB, 1 TIME
     Route: 048
     Dates: start: 20220706, end: 20220706

REACTIONS (6)
  - Fatigue [Recovered/Resolved]
  - Asthenia [Recovered/Resolved]
  - Vaginal haemorrhage [Recovered/Resolved]
  - Vaginal haemorrhage [Recovered/Resolved]
  - Drug ineffective [Recovered/Resolved]
  - Pregnancy after post coital contraception [Not Recovered/Not Resolved]

NARRATIVE: CASE EVENT DATE: 20220706
